FAERS Safety Report 4439627-X (Version None)
Quarter: 2004Q3

REPORT INFORMATION
  Report Type: 
  Country: None (occurrence: None)
  Receive Date: 20040830
  Receipt Date: 20040813
  Transmission Date: 20050211
  Serious: Yes (Hospitalization)
  Sender: FDA-Public Use
  Company Number: 188532

PATIENT
  Age: 43 Year
  Sex: Male
  Weight: 64.4108 kg

DRUGS (6)
  1. AVONEX [Suspect]
     Indication: MULTIPLE SCLEROSIS
     Dosage: 30 MCG QW IM
     Route: 030
     Dates: start: 20030908
  2. CELEBREX [Concomitant]
  3. VICODIN [Concomitant]
  4. VALIUM [Concomitant]
  5. SOMA [Concomitant]
  6. MEDICATION (NOS) [Concomitant]

REACTIONS (8)
  - ARTHRALGIA [None]
  - BLOOD PRESSURE DECREASED [None]
  - DEPRESSION [None]
  - HEART RATE DECREASED [None]
  - INFLUENZA [None]
  - MULTIPLE SCLEROSIS RELAPSE [None]
  - PROTEIN TOTAL INCREASED [None]
  - VIRAL INFECTION [None]
